FAERS Safety Report 10506087 (Version 2)
Quarter: 2014Q4

REPORT INFORMATION
  Report Type: Spontaneous
  Country: DE (occurrence: DE)
  Receive Date: 20141008
  Receipt Date: 20141008
  Transmission Date: 20150528
  Serious: Yes (Other)
  Sender: FDA-Public Use
  Company Number: DE-ABBVIE-14K-062-1280469-00

PATIENT
  Age: 14 Year
  Sex: Male
  Weight: 43.9 kg

DRUGS (2)
  1. HUMIRA [Suspect]
     Active Substance: ADALIMUMAB
     Indication: JUVENILE IDIOPATHIC ARTHRITIS
     Route: 058
     Dates: start: 201304
  2. HUMIRA [Suspect]
     Active Substance: ADALIMUMAB
     Indication: RHEUMATOID ARTHRITIS

REACTIONS (3)
  - Diarrhoea [Unknown]
  - Faecal calprotectin increased [Unknown]
  - Large intestine polyp [Unknown]

NARRATIVE: CASE EVENT DATE: 20130523
